FAERS Safety Report 9039735 (Version 1)
Quarter: 2013Q1

REPORT INFORMATION
  Report Type: Report from Study
  Country: US (occurrence: US)
  Receive Date: 20130130
  Receipt Date: 20130130
  Transmission Date: 20140127
  Serious: No
  Sender: FDA-Public Use
  Company Number: US-ABBOTT-12P-163-0944353-00

PATIENT
  Age: 73 Year
  Sex: Female

DRUGS (16)
  1. HUMIRA 40 MG/0.8 ML PEN [Suspect]
     Indication: PSORIASIS
     Route: 058
     Dates: start: 20120430
  2. PAROXETINE [Concomitant]
     Indication: NERVOUSNESS
     Dosage: 40MG ONCE A DAY
  3. LEVOTHYROXINE [Concomitant]
     Indication: HYPOTHYROIDISM
     Dosage: 50MG ONCE A DAY
  4. NYSTATIN [Concomitant]
     Indication: FUNGAL INFECTION
     Dosage: UP TO 3 TIMES A DAY
  5. OYST-CAL [Concomitant]
     Indication: PRODUCT USED FOR UNKNOWN INDICATION
  6. LISINOPRIL [Concomitant]
     Indication: HYPERTENSION
     Dosage: 20MG ONCE A DAY
  7. METFORMIN [Concomitant]
     Indication: DIABETES MELLITUS
  8. FUROSEMIDE [Concomitant]
     Indication: DIURETIC THERAPY
     Dosage: 20MG ONCE A DAY
  9. FAMOTIDINE [Concomitant]
     Indication: GASTROOESOPHAGEAL REFLUX DISEASE
  10. SINGULAIR [Concomitant]
     Indication: ASTHMA
     Dosage: AT BEDTIME
  11. ADVAIR [Concomitant]
     Indication: ASTHMA
     Dosage: DISK 500/50 TWICE A DAY
  12. XOPENEX [Concomitant]
     Indication: ASTHMA
     Dosage: AS NEEDED
  13. POTASSIUM [Concomitant]
     Indication: PRODUCT USED FOR UNKNOWN INDICATION
  14. BETAMETHASONE [Concomitant]
     Indication: PSORIASIS
     Dosage: AFTER USING DOVONEX CREAM FOR PSORIASIS
  15. CALCIUM/VITAMIN D [Concomitant]
     Indication: PRODUCT USED FOR UNKNOWN INDICATION
     Dosage: TWO  TABLETS A DAY
  16. CLOBETASOL [Concomitant]
     Indication: PSORIASIS

REACTIONS (1)
  - Nervousness [Not Recovered/Not Resolved]
